FAERS Safety Report 9962446 (Version 1)
Quarter: 2014Q1

REPORT INFORMATION
  Report Type: Report from Study
  Country: US (occurrence: US)
  Receive Date: 20140305
  Receipt Date: 20140305
  Transmission Date: 20141002
  Serious: Yes (Hospitalization, Other)
  Sender: FDA-Public Use
  Company Number: PHEH2014US004333

PATIENT
  Sex: Female

DRUGS (2)
  1. SANDOSTATIN LAR DEPOT [Suspect]
     Indication: CARCINOID SYNDROME
     Dosage: 20 MG, UNK
  2. COUMADIN [Concomitant]
     Dosage: UNK UKN, UNK

REACTIONS (2)
  - Renal failure acute [Unknown]
  - Cystitis [Unknown]
